FAERS Safety Report 9767956 (Version 1)
Quarter: 2013Q4

REPORT INFORMATION
  Report Type: Spontaneous
  Country: FR (occurrence: FR)
  Receive Date: 20131217
  Receipt Date: 20131217
  Transmission Date: 20140711
  Serious: Yes (Other)
  Sender: FDA-Public Use
  Company Number: FR-TEVA-448934ISR

PATIENT
  Age: 80 Year
  Sex: Male

DRUGS (1)
  1. LEVOFLOXACINE TEVA 500MG [Suspect]
     Indication: SINUSITIS
     Dosage: 500 MILLIGRAM DAILY;
     Dates: start: 201210, end: 201210

REACTIONS (4)
  - Thrombophlebitis superficial [Recovered/Resolved]
  - Tendon rupture [Unknown]
  - Pain in extremity [Unknown]
  - Oedema peripheral [Unknown]
